FAERS Safety Report 6518282-9 (Version None)
Quarter: 2009Q4

REPORT INFORMATION
  Report Type: 
  Country: None (occurrence: None)
  Receive Date: 20091223
  Receipt Date: 20091223
  Transmission Date: 20100525
  Serious: Yes (Other)
  Sender: FDA-Public Use
  Company Number: None

PATIENT
  Sex: Male
  Weight: 87.0906 kg

DRUGS (1)
  1. ENALAPRIL MALEATE [Suspect]
     Indication: BLOOD PRESSURE

REACTIONS (3)
  - DRUG EFFECT DECREASED [None]
  - PAIN [None]
  - PRODUCT SUBSTITUTION ISSUE [None]
